FAERS Safety Report 14966878 (Version 1)
Quarter: 2018Q2

REPORT INFORMATION
  Report Type: Spontaneous
  Country: CH (occurrence: CH)
  Receive Date: 20180604
  Receipt Date: 20180604
  Transmission Date: 20180711
  Serious: Yes (Hospitalization)
  Sender: FDA-Public Use
  Company Number: CH-CHEPLA-1994193

PATIENT
  Age: 61 Year
  Sex: Male

DRUGS (4)
  1. EUTHYROX [Suspect]
     Active Substance: LEVOTHYROXINE SODIUM
     Indication: HYPOTHYROIDISM
     Route: 048
  2. DAFALGAN [Suspect]
     Active Substance: ACETAMINOPHEN
     Route: 048
  3. XENICAL [Suspect]
     Active Substance: ORLISTAT
     Indication: OBESITY
     Route: 048
     Dates: start: 201708, end: 20170819
  4. SIMCORA [Suspect]
     Active Substance: SIMVASTATIN
     Route: 048
     Dates: end: 201708

REACTIONS (3)
  - Conjunctivitis [Unknown]
  - Toxic skin eruption [Recovering/Resolving]
  - Odynophagia [Unknown]

NARRATIVE: CASE EVENT DATE: 20170819
